FAERS Safety Report 5259071-5 (Version None)
Quarter: 2007Q1

REPORT INFORMATION
  Report Type: 
  Country: None (occurrence: None)
  Receive Date: 20070308
  Receipt Date: 20070302
  Transmission Date: 20070707
  Serious: Yes (Death, Life-Threatening)
  Sender: FDA-Public Use
  Company Number: JP-ABBOTT-06P-087-0354120-00

PATIENT
  Sex: Male
  Weight: 62 kg

DRUGS (5)
  1. NORVIR [Suspect]
     Indication: HIV INFECTION
     Route: 048
     Dates: start: 20060111, end: 20060130
  2. LAMIVUDINE [Concomitant]
     Indication: HIV INFECTION
     Route: 048
     Dates: start: 20060105, end: 20060130
  3. EFAVIRENZ [Concomitant]
     Indication: HIV INFECTION
     Route: 048
     Dates: start: 20060105, end: 20060110
  4. TENOFOVIR DISOPROXIL FUMARATE [Concomitant]
     Indication: HIV INFECTION
     Route: 048
     Dates: start: 20060105, end: 20060130
  5. ATAZANAVIR SULFATE [Concomitant]
     Indication: HIV INFECTION
     Route: 048
     Dates: start: 20060111, end: 20060130

REACTIONS (4)
  - DISSEMINATED INTRAVASCULAR COAGULATION [None]
  - DISSEMINATED TUBERCULOSIS [None]
  - GASTROINTESTINAL HAEMORRHAGE [None]
  - KAPOSI'S SARCOMA [None]
